FAERS Safety Report 9750086 (Version 1)
Quarter: 2013Q4

REPORT INFORMATION
  Report Type: Spontaneous
  Country: GB (occurrence: GB)
  Receive Date: 20131212
  Receipt Date: 20131212
  Transmission Date: 20140711
  Serious: No
  Sender: FDA-Public Use
  Company Number: GB-GILEAD-GB-CVT-100006

PATIENT
  Age: 69 Year
  Sex: Male

DRUGS (17)
  1. RANEXA [Suspect]
     Indication: ANGINA PECTORIS
  2. ASPIRIN                            /00002701/ [Concomitant]
  3. CLOPIDOGREL                        /01220701/ [Concomitant]
  4. AMITRIPTYLINE                      /00002201/ [Concomitant]
  5. OMEPRAZOL [Concomitant]
  6. AMLODIPINE [Concomitant]
  7. CANDESARTAN [Concomitant]
  8. SIMVASTATIN [Concomitant]
  9. NICORANDIL [Concomitant]
  10. TAMSULOSIN [Concomitant]
  11. ISOSORBIDE MONONITRATE [Concomitant]
  12. METFORMIN                          /00082701/ [Concomitant]
  13. FRUSEMIDE [Concomitant]
  14. RANITIDINE                         /00550801/ [Concomitant]
  15. GLICLAZIDE [Concomitant]
  16. BISOPROLOL                         /00802601/ [Concomitant]
  17. INSULIN                            /00030501/ [Concomitant]

REACTIONS (1)
  - Tremor [Recovered/Resolved]
